FAERS Safety Report 20771358 (Version 1)
Quarter: 2022Q2

REPORT INFORMATION
  Report Type: Report from Study
  Country: US (occurrence: US)
  Receive Date: 20220429
  Receipt Date: 20220429
  Transmission Date: 20220721
  Serious: Yes (Hospitalization)
  Sender: FDA-Public Use
  Company Number: US-BAUSCH-BL-2022-010672

PATIENT
  Age: 77 Year
  Sex: Female
  Weight: 89.438 kg

DRUGS (15)
  1. XIFAXAN [Suspect]
     Active Substance: RIFAXIMIN
     Indication: Hepatic encephalopathy
     Route: 048
  2. ALBUTEROL SULFATE [Concomitant]
     Active Substance: ALBUTEROL SULFATE
     Indication: Product used for unknown indication
     Dosage: 2.5 MG/ 0.5 ML TAKE 3 MIS BY NEBULIZER EVERY 4 HOURS AS NEEDED
  3. CITALOPRAM HYDROBROMIDE [Concomitant]
     Active Substance: CITALOPRAM HYDROBROMIDE
     Indication: Product used for unknown indication
     Dosage: CELEXA
     Route: 048
  4. LORATADINE [Concomitant]
     Active Substance: LORATADINE
     Indication: Product used for unknown indication
     Dosage: CLARITIN
  5. FERROUS SULFATE [Concomitant]
     Active Substance: FERROUS SULFATE
     Indication: Product used for unknown indication
     Dosage: 325 MG (65 MG IRON), 1 PO DAILY
     Route: 048
  6. FUROSEMIDE [Concomitant]
     Active Substance: FUROSEMIDE
     Indication: Product used for unknown indication
     Route: 048
  7. HYDRALAZINE [Concomitant]
     Active Substance: HYDRALAZINE HYDROCHLORIDE
     Indication: Product used for unknown indication
     Dosage: AS NEEDED
     Route: 048
  8. ALBUTEROL SULFATE\IPRATROPIUM BROMIDE [Concomitant]
     Active Substance: ALBUTEROL SULFATE\IPRATROPIUM BROMIDE
     Indication: Product used for unknown indication
     Dosage: IPRATROPIUM-ALBUTEROL 0.5 MG-3 MG (2.5 MG BASE)/3 ML, TAKE HOURS BY NEBULIZATION 4 TIMES DAILY PRN
  9. LACTULOSE [Concomitant]
     Active Substance: LACTULOSE
     Indication: Product used for unknown indication
     Dosage: 10 GRAM/15 ML TAKE 30 MIS  BY MOUTH 3 TIMES DAILY
     Route: 048
  10. LEVOTHYROXINE [Concomitant]
     Active Substance: LEVOTHYROXINE
     Indication: Product used for unknown indication
     Route: 048
  11. MAGNESIUM CITRATE [Concomitant]
     Active Substance: MAGNESIUM CITRATE
     Indication: Product used for unknown indication
     Route: 048
  12. METOPROLOL TARTRATE [Concomitant]
     Active Substance: METOPROLOL TARTRATE
     Indication: Product used for unknown indication
     Dosage: METOPROLOL TARTRATE 25 MG TAKE 12.5 TWO TIMES DAILY
     Route: 048
  13. PANTOPRAZOLE [Concomitant]
     Active Substance: PANTOPRAZOLE
     Indication: Product used for unknown indication
     Route: 048
  14. ONDANSETRON [Concomitant]
     Active Substance: ONDANSETRON
     Indication: Product used for unknown indication
     Dosage: ZOFRAN 40 MG, TAKE TABLET BY MOUTH EVERY EIGHT HOURS AS DIRECTED
     Route: 048
  15. PNEUMOCOCCAL VACCINE CONJ [Concomitant]
     Indication: Immunisation
     Dosage: PNEUMOCOCCAL CONJGATE PCV 13,2016

REACTIONS (7)
  - Cardiac failure acute [Unknown]
  - Weight decreased [Unknown]
  - Decreased appetite [Unknown]
  - Headache [Unknown]
  - Arthralgia [Unknown]
  - Confusional state [Unknown]
  - Amnesia [Unknown]
